FAERS Safety Report 5173618-9 (Version None)
Quarter: 2006Q4

REPORT INFORMATION
  Report Type: 
  Country: None (occurrence: None)
  Receive Date: 20061208
  Receipt Date: 20061208
  Transmission Date: 20070319
  Serious: Yes (Hospitalization)
  Sender: FDA-Public Use
  Company Number: None

PATIENT
  Sex: Male
  Weight: 115.2 kg

DRUGS (5)
  1. CYTARABINE [Suspect]
     Dosage: 2050 MG
  2. ETOPOSIDE [Suspect]
     Dosage: 328 MG
  3. IFOSFAMIDE [Suspect]
     Dosage: 6560 MG
  4. METHOTREXATE [Suspect]
     Dosage: 2760 MG
  5. VINCRISTINE SULFATE [Suspect]
     Dosage: 2 MG

REACTIONS (1)
  - MUCOSAL INFLAMMATION [None]
